FAERS Safety Report 7234082-9 (Version None)
Quarter: 2011Q1

REPORT INFORMATION
  Report Type: 
  Country: None (occurrence: None)
  Receive Date: 20110113
  Receipt Date: 20110113
  Transmission Date: 20110831
  Serious: Yes (Hospitalization, Other)
  Sender: FDA-Public Use
  Company Number: None

PATIENT
  Age: 28 Year
  Sex: Female
  Weight: 63.05 kg

DRUGS (3)
  1. MIRENA [Suspect]
     Indication: AFFECTIVE DISORDER
     Dosage: VAG
     Route: 067
     Dates: start: 20081211, end: 20110111
  2. MIRENA [Suspect]
     Indication: MENSTRUATION IRREGULAR
     Dosage: VAG
     Route: 067
     Dates: start: 20081211, end: 20110111
  3. MIRENA [Suspect]
     Indication: CONTRACEPTION
     Dosage: VAG
     Route: 067
     Dates: start: 20081211, end: 20110111

REACTIONS (8)
  - FATIGUE [None]
  - PANIC ATTACK [None]
  - HAEMORRHAGE [None]
  - MUSCLE SPASMS [None]
  - DEPRESSION [None]
  - MOOD SWINGS [None]
  - ANXIETY [None]
  - WEIGHT INCREASED [None]
